FAERS Safety Report 6119566-9 (Version None)
Quarter: 2009Q1

REPORT INFORMATION
  Report Type: 
  Country: None (occurrence: None)
  Receive Date: 20090316
  Receipt Date: 20090311
  Transmission Date: 20090719
  Serious: Yes (Hospitalization)
  Sender: FDA-Public Use
  Company Number: B0564467A

PATIENT
  Age: 90 Year
  Sex: Female

DRUGS (8)
  1. AUGMENTIN '125' [Suspect]
     Indication: ERYSIPELAS
     Dosage: 2G PER DAY
     Route: 048
     Dates: start: 20080904, end: 20080912
  2. DI ANTALVIC [Suspect]
     Indication: PAIN
     Dosage: 4UNIT PER DAY
     Route: 048
     Dates: end: 20080922
  3. SERESTA [Suspect]
     Indication: ANXIETY
     Dosage: 10MG PER DAY
     Route: 048
     Dates: end: 20080924
  4. GAVISCON [Suspect]
     Indication: DRUG USE FOR UNKNOWN INDICATION
     Dosage: 3SAC PER DAY
     Route: 048
     Dates: end: 20080922
  5. LASIX [Concomitant]
     Route: 065
  6. SECTRAL [Concomitant]
     Route: 065
  7. AMLOR [Concomitant]
     Route: 065
  8. TRANSIPEG [Concomitant]
     Route: 065

REACTIONS (11)
  - BETA 2 MICROGLOBULIN INCREASED [None]
  - DERMATITIS EXFOLIATIVE [None]
  - EOSINOPHILIA [None]
  - EYELID OEDEMA [None]
  - FACE OEDEMA [None]
  - PRURITUS [None]
  - RASH ERYTHEMATOUS [None]
  - RASH MACULO-PAPULAR [None]
  - RASH SCARLATINIFORM [None]
  - SKIN EXFOLIATION [None]
  - TOXIC SKIN ERUPTION [None]
